FAERS Safety Report 5764934-8 (Version None)
Quarter: 2008Q2

REPORT INFORMATION
  Report Type: 
  Country: None (occurrence: None)
  Receive Date: 20080611
  Receipt Date: 20080602
  Transmission Date: 20081010
  Serious: Yes (Death)
  Sender: FDA-Public Use
  Company Number: A0732078A

PATIENT
  Age: 16 Year
  Sex: Male

DRUGS (3)
  1. ADVAIR DISKUS 100/50 [Suspect]
     Indication: ASTHMA
     Dosage: 1PUFF PER DAY
     Route: 055
  2. ADDERALL 10 [Suspect]
  3. RITALIN [Suspect]

REACTIONS (2)
  - ASTHMA [None]
  - DRUG INTERACTION [None]
